FAERS Safety Report 10276987 (Version 2)
Quarter: 2014Q3

REPORT INFORMATION
  Report Type: Spontaneous
  Country: FR (occurrence: FR)
  Receive Date: 20140703
  Receipt Date: 20140807
  Transmission Date: 20150326
  Serious: Yes (Hospitalization)
  Sender: FDA-Public Use
  Company Number: FR-TEVA-492230ISR

PATIENT
  Age: 72 Year
  Sex: Male

DRUGS (20)
  1. TEMERIT [Concomitant]
     Active Substance: NEBIVOLOL
  2. INEXIUM [Concomitant]
     Active Substance: ESOMEPRAZOLE
  3. CARBOPLATINE TEVA [Suspect]
     Active Substance: CARBOPLATIN
     Indication: LUNG NEOPLASM MALIGNANT
     Route: 042
     Dates: start: 20140528, end: 20140528
  4. DIOSMINE [Concomitant]
     Active Substance: HESPERIDIN
  5. ALIMTA [Suspect]
     Active Substance: PEMETREXED DISODIUM
     Indication: LUNG NEOPLASM MALIGNANT
     Route: 042
     Dates: start: 20140528, end: 20140528
  6. INNOHEP [Concomitant]
     Active Substance: TINZAPARIN SODIUM
  7. ULCAR [Concomitant]
     Active Substance: SUCRALFATE
  8. CORDARONE [Concomitant]
     Active Substance: AMIODARONE HYDROCHLORIDE
  9. JANUVIA [Concomitant]
     Active Substance: SITAGLIPTIN PHOSPHATE
  10. GLUCOPHAGE [Concomitant]
     Active Substance: METFORMIN HYDROCHLORIDE
  11. DIAMICRON [Concomitant]
     Active Substance: GLICLAZIDE
  12. DIFFU K [Concomitant]
     Active Substance: POTASSIUM CHLORIDE
  13. XATRAL [Concomitant]
     Active Substance: ALFUZOSIN
  14. LASILIX [Concomitant]
     Active Substance: FUROSEMIDE
  15. APROVEL [Concomitant]
     Active Substance: IRBESARTAN
  16. TAHOR [Concomitant]
     Active Substance: ATORVASTATIN CALCIUM
  17. SPECIAFOLDINE [Concomitant]
     Active Substance: FOLIC ACID
  18. ZOPHREN [Concomitant]
     Active Substance: ONDANSETRON
  19. SOLU-MEDROL [Concomitant]
     Active Substance: METHYLPREDNISOLONE SODIUM SUCCINATE
  20. AVODART [Concomitant]
     Active Substance: DUTASTERIDE

REACTIONS (1)
  - Renal tubular necrosis [Recovered/Resolved with Sequelae]

NARRATIVE: CASE EVENT DATE: 20140602
